FAERS Safety Report 7640833-1 (Version None)
Quarter: 2011Q3

REPORT INFORMATION
  Report Type: 
  Country: None (occurrence: None)
  Receive Date: 20110728
  Receipt Date: 20110420
  Transmission Date: 20111222
  Serious: No
  Sender: FDA-Public Use
  Company Number: US-MUTUAL PHARMACEUTICAL COMPANY, INC.-CLHC20110017

PATIENT
  Sex: Male
  Weight: 81 kg

DRUGS (4)
  1. XANAX [Concomitant]
     Indication: ANXIETY
     Route: 065
  2. PRISTIQ [Concomitant]
     Indication: ANXIETY
     Route: 065
  3. IBUPROFEN [Concomitant]
     Indication: PAIN
     Route: 048
     Dates: start: 20100421
  4. COLCHICINE [Suspect]
     Indication: GOUT
     Route: 048
     Dates: start: 20100526

REACTIONS (4)
  - PARAESTHESIA ORAL [None]
  - PAIN IN JAW [None]
  - SWELLING FACE [None]
  - DRUG HYPERSENSITIVITY [None]
